FAERS Safety Report 8381432-6 (Version None)
Quarter: 2012Q2

REPORT INFORMATION
  Report Type: 
  Country: None (occurrence: None)
  Receive Date: 20120523
  Receipt Date: 20120521
  Transmission Date: 20120825
  Serious: Yes (Death)
  Sender: FDA-Public Use
  Company Number: NO-ROCHE-1069835

PATIENT
  Age: 52 Year
  Sex: Male
  Weight: 58.5 kg

DRUGS (8)
  1. OXAZEPAM [Concomitant]
     Dates: start: 20120412, end: 20120513
  2. SOMAC (NORWAY) [Concomitant]
     Dates: start: 20120412, end: 20120513
  3. METOPROLOL SUCCINATE [Concomitant]
     Dates: start: 20120411, end: 20120513
  4. ACETAMINOPHEN [Concomitant]
     Dates: start: 20111214, end: 20120513
  5. LYRICA [Concomitant]
     Dates: start: 20111214, end: 20120513
  6. VEMURAFENIB [Suspect]
     Indication: MALIGNANT MELANOMA
     Route: 048
     Dates: start: 20120511, end: 20120512
  7. ENOXAPARIN SODIUM [Concomitant]
     Dates: start: 20111213, end: 20120513
  8. DURAGESIC-100 [Concomitant]
     Dates: start: 20120413, end: 20120513

REACTIONS (1)
  - DEATH [None]
